FAERS Safety Report 9608569 (Version 1)
Quarter: 2013Q4

REPORT INFORMATION
  Report Type: Spontaneous
  Country: US (occurrence: US)
  Receive Date: 20131009
  Receipt Date: 20131009
  Transmission Date: 20140711
  Serious: No
  Sender: FDA-Public Use
  Company Number: US-009507513-1310USA002941

PATIENT
  Sex: Female

DRUGS (2)
  1. PROVENTIL [Suspect]
  2. PROAIR (ALBUTEROL SULFATE) [Concomitant]

REACTIONS (2)
  - Nasopharyngitis [Not Recovered/Not Resolved]
  - Drug ineffective [Unknown]
